FAERS Safety Report 22219252 (Version 1)
Quarter: 2023Q2

REPORT INFORMATION
  Report Type: Spontaneous
  Country: CN (occurrence: CN)
  Receive Date: 20230417
  Receipt Date: 20230417
  Transmission Date: 20230721
  Serious: Yes (Hospitalization)
  Sender: FDA-Public Use
  Company Number: CN-BRACCO-2023CN01748

PATIENT
  Age: 66 Year
  Sex: Male

DRUGS (2)
  1. IOPAMIDOL [Suspect]
     Active Substance: IOPAMIDOL
     Indication: Aneurysm repair
     Dosage: 200 ML, SINGLE
     Dates: start: 20230331, end: 20230331
  2. SODIUM CHLORIDE [Concomitant]
     Active Substance: SODIUM CHLORIDE
     Indication: Aneurysm repair
     Dosage: 100 ML
     Dates: start: 20230331, end: 20230331

REACTIONS (2)
  - Aphasia [Recovered/Resolved]
  - Muscular weakness [Recovered/Resolved]

NARRATIVE: CASE EVENT DATE: 20230331
